FAERS Safety Report 18588275 (Version 6)
Quarter: 2021Q1

REPORT INFORMATION
  Report Type: Report from Study
  Country: None (occurrence: CH)
  Receive Date: 20201208
  Receipt Date: 20210315
  Transmission Date: 20210419
  Serious: Yes (Hospitalization, Other)
  Sender: FDA-Public Use
  Company Number: CH-ABBVIE-20K-151-3669892-00

PATIENT
  Age: 77 Year
  Sex: Male

DRUGS (7)
  1. DUODOPA [Suspect]
     Active Substance: CARBIDOPA\LEVODOPA
     Dosage: MD: 5.5 ML, CRD: 2.0ML/H, CRN 0ML, ED: 0,5ML
     Route: 050
     Dates: start: 2020, end: 20201203
  2. DUODOPA [Suspect]
     Active Substance: CARBIDOPA\LEVODOPA
     Dosage: MD: 2ML, CRD: 1,8ML/H, CRN 0ML, ED: 0,5ML
     Route: 050
     Dates: start: 20201120, end: 20201125
  3. DUODOPA [Suspect]
     Active Substance: CARBIDOPA\LEVODOPA
     Dosage: MD: 5.5 ML, CRD: 1.9 ML/H, CRN 0ML, ED: 0ML, 16 H THERAPY
     Route: 050
     Dates: start: 20201203, end: 202101
  4. DUODOPA [Suspect]
     Active Substance: CARBIDOPA\LEVODOPA
     Dosage: MD: NONE, CRD: 1,8ML/H, CRN 0ML, ED: 0,5ML
     Route: 050
     Dates: start: 20201125, end: 20201125
  5. DUODOPA [Suspect]
     Active Substance: CARBIDOPA\LEVODOPA
     Indication: PARKINSON^S DISEASE
     Route: 050
     Dates: start: 20201117, end: 20201120
  6. DUODOPA [Suspect]
     Active Substance: CARBIDOPA\LEVODOPA
     Dosage: MD: 5ML, CRD: 2.0ML/H, CRN 0ML, ED: 0,5ML, PUMP STOPPED 11:00 TO 11:30
     Route: 050
     Dates: start: 20201126, end: 2020
  7. DUODOPA [Suspect]
     Active Substance: CARBIDOPA\LEVODOPA
     Dosage: MD: 5.5 ML, CRD: 1.9 ML/H, CRN 0ML, ED: 1.0ML 16 H THERAPY
     Route: 050
     Dates: start: 202101

REACTIONS (15)
  - Device use error [Unknown]
  - C-reactive protein increased [Not Recovered/Not Resolved]
  - Mobility decreased [Not Recovered/Not Resolved]
  - Abdominal pain upper [Unknown]
  - Melaena [Recovered/Resolved]
  - Haemoglobin decreased [Unknown]
  - Colon neoplasm [Unknown]
  - Fatigue [Unknown]
  - Post procedural complication [Recovered/Resolved]
  - Stoma complication [Recovered/Resolved]
  - Insomnia [Unknown]
  - Lung disorder [Unknown]
  - Asthenia [Unknown]
  - Dyskinesia [Recovered/Resolved]
  - Hyperkinesia [Recovered/Resolved]

NARRATIVE: CASE EVENT DATE: 20201123
